FAERS Safety Report 6074651-5 (Version None)
Quarter: 2009Q1

REPORT INFORMATION
  Report Type: 
  Country: None (occurrence: None)
  Receive Date: 20090209
  Receipt Date: 20090209
  Transmission Date: 20090719
  Serious: Yes (Disabling)
  Sender: FDA-Public Use
  Company Number: None

PATIENT
  Age: 47 Year
  Sex: Female
  Weight: 56.246 kg

DRUGS (2)
  1. RECLAST [Suspect]
     Indication: OSTEOPENIA
     Dosage: 5MG ONE ANNUALLY IV  (ONCE)
     Route: 042
     Dates: start: 20081128, end: 20081128
  2. RECLAST [Suspect]
     Indication: POSTMENOPAUSE
     Dosage: 5MG ONE ANNUALLY IV  (ONCE)
     Route: 042
     Dates: start: 20081128, end: 20081128

REACTIONS (7)
  - CHILLS [None]
  - GLARE [None]
  - HEADACHE [None]
  - IRITIS [None]
  - PAIN IN JAW [None]
  - TEMPOROMANDIBULAR JOINT SYNDROME [None]
  - TOOTHACHE [None]
